FAERS Safety Report 23159554 (Version 1)
Quarter: 2023Q4

REPORT INFORMATION
  Report Type: Spontaneous
  Country: US (occurrence: US)
  Receive Date: 20231108
  Receipt Date: 20231108
  Transmission Date: 20240109
  Serious: No
  Sender: FDA-Public Use
  Company Number: US-009507513-2310USA006859

PATIENT
  Age: 4 Month
  Sex: Female

DRUGS (1)
  1. PRIMAXIN IV [Suspect]
     Active Substance: CILASTATIN SODIUM\IMIPENEM
     Indication: Mycobacterium abscessus infection
     Dosage: 20 MG/KG/DOSE

REACTIONS (4)
  - Hypertransaminasaemia [Recovered/Resolved]
  - Drug intolerance [Unknown]
  - Off label use [Unknown]
  - Inappropriate schedule of product administration [Unknown]
